FAERS Safety Report 7331479-3 (Version None)
Quarter: 2011Q1

REPORT INFORMATION
  Report Type: 
  Country: None (occurrence: None)
  Receive Date: 20110304
  Receipt Date: 20110224
  Transmission Date: 20110831
  Serious: No
  Sender: FDA-Public Use
  Company Number: B0702675A

PATIENT
  Sex: Male

DRUGS (1)
  1. RELENZA [Suspect]
     Indication: ANTIVIRAL PROPHYLAXIS
     Dosage: 4IUAX PER DAY
     Route: 055

REACTIONS (1)
  - INCORRECT DOSE ADMINISTERED [None]
